FAERS Safety Report 4413916-7 (Version None)
Quarter: 2004Q3

REPORT INFORMATION
  Report Type: 
  Country: None (occurrence: None)
  Receive Date: 20040803
  Receipt Date: 20040723
  Transmission Date: 20050211
  Serious: Yes (Hospitalization)
  Sender: FDA-Public Use
  Company Number: JP-BRISTOL-MYERS SQUIBB COMPANY-12655668

PATIENT
  Age: 76 Year
  Sex: Male

DRUGS (9)
  1. GATIFLO TABS 100 MG [Suspect]
     Indication: PNEUMONIA
     Route: 048
     Dates: start: 20040308, end: 20040314
  2. DASEN [Concomitant]
     Route: 048
  3. MEDICON [Concomitant]
     Route: 048
  4. TSUMURA CHOREI-TO [Concomitant]
     Route: 048
  5. BROCIN [Concomitant]
     Route: 048
  6. DIART [Concomitant]
     Route: 048
  7. SLOW-K [Concomitant]
     Route: 048
  8. GASTER [Concomitant]
     Route: 048
  9. NU-LOTAN [Concomitant]
     Route: 048

REACTIONS (1)
  - LIVER DISORDER [None]
